FAERS Safety Report 5282902-X (Version None)
Quarter: 2007Q1

REPORT INFORMATION
  Report Type: 
  Country: None (occurrence: None)
  Receive Date: 20070327
  Receipt Date: 20070314
  Transmission Date: 20070707
  Serious: Yes (Disabling)
  Sender: FDA-Public Use
  Company Number: GBPFL-E-20070002

PATIENT
  Sex: Female

DRUGS (6)
  1. NAVELBINE [Suspect]
     Indication: DRUG USE FOR UNKNOWN INDICATION
     Dates: start: 20060515, end: 20060615
  2. DOCETAXEL [Suspect]
     Indication: DRUG USE FOR UNKNOWN INDICATION
     Dates: start: 20050915, end: 20060915
  3. TRASTUZUMAB [Suspect]
     Indication: DRUG USE FOR UNKNOWN INDICATION
     Dates: start: 20050915, end: 20060615
  4. XELODA [Suspect]
     Indication: DRUG USE FOR UNKNOWN INDICATION
     Dates: start: 20060715, end: 20061215
  5. LANSOPRAZOLE [Concomitant]
  6. PYRIDOXINE HCL [Concomitant]

REACTIONS (1)
  - DERMATOMYOSITIS [None]
